FAERS Safety Report 6205948-3 (Version None)
Quarter: 2009Q2

REPORT INFORMATION
  Report Type: 
  Country: None (occurrence: None)
  Receive Date: 20090527
  Receipt Date: 20090527
  Transmission Date: 20091009
  Serious: No
  Sender: FDA-Public Use
  Company Number: None

PATIENT
  Age: 38 Year
  Sex: Female
  Weight: 63.9572 kg

DRUGS (3)
  1. SPECTRACEF [Suspect]
     Indication: BRONCHITIS
     Dosage: 400 BID XD
  2. SPECTRACEF [Suspect]
     Indication: SINUSITIS
     Dosage: 400 BID XD
  3. TUSSIONEX [Concomitant]

REACTIONS (3)
  - ABDOMINAL PAIN [None]
  - CLOSTRIDIAL INFECTION [None]
  - VOMITING [None]
